FAERS Safety Report 10408791 (Version 3)
Quarter: 2014Q4

REPORT INFORMATION
  Report Type: Report from Study
  Country: US (occurrence: US)
  Receive Date: 20140826
  Receipt Date: 20141024
  Transmission Date: 20150528
  Serious: Yes (Hospitalization, Other)
  Sender: FDA-Public Use
  Company Number: PHEH2014US016802

PATIENT
  Sex: Male

DRUGS (6)
  1. VITAMIN D [Concomitant]
     Active Substance: CHOLECALCIFEROL
     Dosage: 2000 U, QD
  2. FLEXOR                             /01431201/ [Concomitant]
     Dosage: 150 MG (HALF TABLET), UNK
  3. BABY ASPIRIN [Concomitant]
     Active Substance: ASPIRIN
     Dosage: 81 MG, QD
  4. BUPROPION [Concomitant]
     Active Substance: BUPROPION
     Dosage: 300 MG, QD
  5. EXELON PATCH [Suspect]
     Active Substance: RIVASTIGMINE
     Dosage: UNK UKN, UNK
     Route: 062
  6. EXELON PATCH [Suspect]
     Active Substance: RIVASTIGMINE
     Dosage: 9.5 MG, QD
     Route: 062

REACTIONS (2)
  - Hip fracture [Unknown]
  - Accident [Unknown]
